APPROVED DRUG PRODUCT: AMOXICILLIN
Active Ingredient: AMOXICILLIN
Strength: 500MG
Dosage Form/Route: CAPSULE;ORAL
Application: A065271 | Product #002 | TE Code: AB
Applicant: AUROBINDO PHARMA LTD
Approved: Nov 9, 2005 | RLD: No | RS: No | Type: RX